FAERS Safety Report 15372555 (Version 3)
Quarter: 2019Q1

REPORT INFORMATION
  Report Type: Report from Study
  Country: None (occurrence: US)
  Receive Date: 20180911
  Receipt Date: 20190203
  Transmission Date: 20190417
  Serious: Yes (Other)
  Sender: FDA-Public Use
  Company Number: US-ABBVIE-18K-163-2476879-00

PATIENT
  Age: 74 Year
  Sex: Male

DRUGS (1)
  1. HUMIRA [Suspect]
     Active Substance: ADALIMUMAB
     Indication: RHEUMATOID ARTHRITIS
     Route: 058
     Dates: start: 20180101

REACTIONS (5)
  - Cataract nuclear [Unknown]
  - Rash macular [Unknown]
  - Hepatic enzyme increased [Unknown]
  - Arterial repair [Unknown]
  - Rash pruritic [Unknown]

NARRATIVE: CASE EVENT DATE: 201806
